FAERS Safety Report 7717303 (Version 3)
Quarter: 2013Q1

REPORT INFORMATION
  Report Type: Spontaneous
  Country: JP (occurrence: JP)
  Receive Date: 20101217
  Receipt Date: 20130327
  Transmission Date: 20140127
  Serious: Yes (Death, Other)
  Sender: FDA-Public Use
  Company Number: JP-ROCHE-738042

PATIENT
  Age: 52 Year
  Sex: Male
  Weight: 68 kg

DRUGS (14)
  1. AVASTIN [Suspect]
     Indication: COLON CANCER METASTATIC
     Route: 041
     Dates: start: 20090728, end: 20090728
  2. ELPLAT [Suspect]
     Indication: COLON CANCER METASTATIC
     Route: 041
     Dates: start: 20090728, end: 20090728
  3. 5-FU [Suspect]
     Indication: COLON CANCER METASTATIC
     Route: 040
     Dates: start: 20090728, end: 20090728
  4. 5-FU [Suspect]
     Dosage: NOTE: DOSAGE IS UNCERTAIN, ROUTE INTRAVENOUS DRIP
     Route: 040
     Dates: start: 20090728, end: 20090730
  5. LEVOFOLINATE [Suspect]
     Indication: COLON CANCER METASTATIC
     Route: 041
     Dates: start: 20090728, end: 20090728
  6. DECADRON [Concomitant]
     Route: 042
     Dates: start: 20090728, end: 20090728
  7. KYTRIL [Concomitant]
     Route: 042
     Dates: start: 20090728, end: 20090728
  8. OLMETEC [Concomitant]
     Route: 048
  9. OMEPRAL [Concomitant]
     Route: 048
  10. MAGLAX [Concomitant]
     Route: 048
     Dates: start: 20090710, end: 20090805
  11. DEPAS [Concomitant]
     Route: 048
     Dates: start: 20090709, end: 20090805
  12. LOXONIN [Concomitant]
     Route: 048
     Dates: start: 20090710, end: 20090805
  13. METOCLOPRAMIDE [Concomitant]
     Dosage: TAKEN AS NEEDED. TAKEN FOR FEELING QUEASY.
     Route: 048
  14. NAUZELIN [Concomitant]
     Dosage: TAKEN AS NEEDED. TAKEN FOR FEELING QUEASY
     Route: 054

REACTIONS (9)
  - Large intestine perforation [Fatal]
  - Peritonitis [Fatal]
  - Disease progression [Fatal]
  - Tachycardia [Not Recovered/Not Resolved]
  - Pleural effusion [Not Recovered/Not Resolved]
  - Nausea [Not Recovered/Not Resolved]
  - Delirium [Recovered/Resolved]
  - Decreased appetite [Not Recovered/Not Resolved]
  - Hepatic enzyme increased [Not Recovered/Not Resolved]
